FAERS Safety Report 7229131-8 (Version None)
Quarter: 2011Q1

REPORT INFORMATION
  Report Type: 
  Country: None (occurrence: None)
  Receive Date: 20110117
  Receipt Date: 20110106
  Transmission Date: 20110831
  Serious: Yes (Other)
  Sender: FDA-Public Use
  Company Number: IT-JNJFOC-20110101941

PATIENT

DRUGS (15)
  1. CAELYX [Suspect]
     Indication: IMMUNOBLASTIC LYMPHOMA
     Route: 042
  2. CYTARABINE [Suspect]
     Indication: PERIPHERAL T-CELL LYMPHOMA UNSPECIFIED
     Route: 065
  3. CISPLATIN [Suspect]
     Indication: PERIPHERAL T-CELL LYMPHOMA UNSPECIFIED
     Route: 065
  4. CAELYX [Suspect]
     Indication: PERIPHERAL T-CELL LYMPHOMA UNSPECIFIED
     Route: 042
  5. ALEMTUZUMAB [Suspect]
     Indication: IMMUNOBLASTIC LYMPHOMA
     Route: 065
  6. VINCRISTINE [Suspect]
     Indication: PERIPHERAL T-CELL LYMPHOMA UNSPECIFIED
     Route: 065
  7. PREDNISOLONE [Suspect]
     Indication: IMMUNOBLASTIC LYMPHOMA
     Route: 065
  8. VINCRISTINE [Suspect]
     Indication: IMMUNOBLASTIC LYMPHOMA
     Route: 065
  9. PREDNISOLONE [Suspect]
     Indication: PERIPHERAL T-CELL LYMPHOMA UNSPECIFIED
     Route: 065
  10. ALEMTUZUMAB [Suspect]
     Indication: PERIPHERAL T-CELL LYMPHOMA UNSPECIFIED
     Route: 065
  11. DEXAMETHASONE [Suspect]
     Indication: PERIPHERAL T-CELL LYMPHOMA UNSPECIFIED
     Route: 065
  12. CYTARABINE [Suspect]
     Indication: IMMUNOBLASTIC LYMPHOMA
     Route: 065
  13. CYCLOPHOSPHAMIDE [Suspect]
     Indication: IMMUNOBLASTIC LYMPHOMA
     Route: 065
  14. DEXAMETHASONE [Suspect]
     Indication: IMMUNOBLASTIC LYMPHOMA
     Route: 065
  15. CYCLOPHOSPHAMIDE [Suspect]
     Indication: PERIPHERAL T-CELL LYMPHOMA UNSPECIFIED
     Route: 065

REACTIONS (1)
  - PNEUMONIA CYTOMEGALOVIRAL [None]
